FAERS Safety Report 12179625 (Version 1)
Quarter: 2016Q1

REPORT INFORMATION
  Report Type: Spontaneous
  Country: US (occurrence: None)
  Receive Date: 20160314
  Receipt Date: 20160314
  Transmission Date: 20160526
  Serious: No
  Sender: FDA-Public Use
  Company Number: None

PATIENT
  Age: 27 Year
  Sex: Male

DRUGS (1)
  1. HUMIRA [Suspect]
     Active Substance: ADALIMUMAB
     Indication: GASTROINTESTINAL INFLAMMATION
     Dosage: ONCE
     Route: 058
     Dates: start: 20160225, end: 20160225

REACTIONS (2)
  - Swelling face [None]
  - Swelling [None]

NARRATIVE: CASE EVENT DATE: 20160225
